FAERS Safety Report 10601547 (Version 3)
Quarter: 2015Q2

REPORT INFORMATION
  Report Type: Report from Study
  Country: TR (occurrence: TR)
  Receive Date: 20141124
  Receipt Date: 20150408
  Transmission Date: 20150821
  Serious: Yes (Hospitalization)
  Sender: FDA-Public Use
  Company Number: TR-NOVOPROD-408243

PATIENT
  Age: 38 Year
  Sex: Female
  Weight: 75 kg

DRUGS (7)
  1. NOVOMIX 30 FLEXPEN [Suspect]
     Active Substance: INSULIN ASPART
     Indication: TYPE 2 DIABETES MELLITUS
     Dosage: 30 U, QD
     Route: 058
     Dates: start: 20140319
  2. FERRO SANOL [Concomitant]
     Active Substance: FERROUS SULFATE\GLYCINE
     Indication: SUPPLEMENTATION THERAPY
     Dosage: UNK
     Route: 048
     Dates: start: 20140319, end: 201405
  3. ELEVIT                             /01730301/ [Concomitant]
     Indication: SUPPLEMENTATION THERAPY
     Dosage: 1X1
     Route: 048
     Dates: start: 20140319, end: 201405
  4. CALCIDAY D3 [Concomitant]
     Indication: SUPPLEMENTATION THERAPY
     Dosage: UNK
     Route: 048
     Dates: start: 20140319, end: 201405
  5. NOVOMIX 30 FLEXPEN [Suspect]
     Active Substance: INSULIN ASPART
     Dosage: 30 U, QD
     Route: 058
     Dates: end: 20140607
  6. PULSE OMEGA 3 [Concomitant]
     Indication: SUPPLEMENTATION THERAPY
     Dosage: 1X1
     Route: 048
     Dates: start: 20140319, end: 201405
  7. MAGNORM [Concomitant]
     Indication: SUPPLEMENTATION THERAPY
     Dosage: 1X1
     Route: 048
     Dates: start: 20140319, end: 201405

REACTIONS (4)
  - Exposure during pregnancy [Recovered/Resolved]
  - Premature delivery [Unknown]
  - Premature rupture of membranes [Unknown]
  - Blood glucose increased [Unknown]

NARRATIVE: CASE EVENT DATE: 20140319
